FAERS Safety Report 9845577 (Version 1)
Quarter: 2014Q1

REPORT INFORMATION
  Report Type: Spontaneous
  Country: US (occurrence: None)
  Receive Date: 20140122
  Receipt Date: 20140122
  Transmission Date: 20141002
  Serious: Yes (Other)
  Sender: FDA-Public Use
  Company Number: 2014P1000156

PATIENT
  Age: 54 Year
  Sex: Female

DRUGS (7)
  1. LAMOTRIGINE [Suspect]
     Indication: DEPRESSION
     Route: 048
     Dates: start: 2013, end: 201401
  2. POTASSIUM [Concomitant]
  3. THYROID SUPPLEMENT [Concomitant]
  4. FISH OIL [Concomitant]
  5. KRILL OIL [Concomitant]
  6. PROBIOTICS [Concomitant]
  7. EMERGENCY CONTRACEPTIVE [Suspect]

REACTIONS (8)
  - Migraine [None]
  - Crying [None]
  - Nausea [None]
  - Drug ineffective [None]
  - Coeliac disease [None]
  - Eosinophilic oesophagitis [None]
  - Throat tightness [None]
  - Sinusitis [None]
